FAERS Safety Report 6357218-0 (Version None)
Quarter: 2009Q3

REPORT INFORMATION
  Report Type: 
  Country: None (occurrence: None)
  Receive Date: 20090911
  Receipt Date: 20090902
  Transmission Date: 20100115
  Serious: Yes (Other)
  Sender: FDA-Public Use
  Company Number: 2009010099

PATIENT
  Age: 19 Year
  Sex: Female

DRUGS (1)
  1. NUVIGIL [Suspect]
     Dosage: 250 MG (250 MG, 1 IN 1 D), ORAL
     Route: 048

REACTIONS (2)
  - PHARYNGITIS [None]
  - THROAT TIGHTNESS [None]
